FAERS Safety Report 5944218-5 (Version None)
Quarter: 2008Q4

REPORT INFORMATION
  Report Type: 
  Country: None (occurrence: None)
  Receive Date: 20081104
  Receipt Date: 20081023
  Transmission Date: 20090506
  Serious: Yes (Death, Other)
  Sender: FDA-Public Use
  Company Number: 2008-04025

PATIENT
  Age: 69 Year
  Sex: Female

DRUGS (3)
  1. VELCADE [Suspect]
     Indication: ACUTE MYELOID LEUKAEMIA
  2. IDARUBICIN HCL [Suspect]
     Indication: ACUTE MYELOID LEUKAEMIA
  3. CYTARABINE [Suspect]
     Indication: ACUTE MYELOID LEUKAEMIA

REACTIONS (9)
  - ACUTE MYELOID LEUKAEMIA RECURRENT [None]
  - DISEASE PROGRESSION [None]
  - GAIT DISTURBANCE [None]
  - HAEMORRHAGE [None]
  - MUSCULAR WEAKNESS [None]
  - PARESIS [None]
  - PROCEDURAL COMPLICATION [None]
  - PROGRESSIVE MULTIFOCAL LEUKOENCEPHALOPATHY [None]
  - SPEECH DISORDER [None]
